FAERS Safety Report 4926030-9 (Version None)
Quarter: 2006Q1

REPORT INFORMATION
  Report Type: 
  Country: None (occurrence: None)
  Receive Date: 20060228
  Receipt Date: 20050729
  Transmission Date: 20060701
  Serious: No
  Sender: FDA-Public Use
  Company Number: US-GLAXOSMITHKLINE-A0568282A

PATIENT
  Sex: Male

DRUGS (6)
  1. LAMICTAL [Suspect]
     Dosage: 100MG PER DAY
     Route: 048
     Dates: start: 20050501
  2. PLAVIX [Concomitant]
  3. COREG [Concomitant]
  4. PAXIL [Concomitant]
  5. TRIAMTERENE [Concomitant]
  6. ACEON [Concomitant]

REACTIONS (2)
  - STRESS [None]
  - TONGUE DISCOLOURATION [None]
